FAERS Safety Report 17400917 (Version 1)
Quarter: 2020Q1

REPORT INFORMATION
  Report Type: Spontaneous
  Country: US (occurrence: US)
  Receive Date: 20200211
  Receipt Date: 20200211
  Transmission Date: 20200409
  Serious: Yes (Hospitalization)
  Sender: FDA-Public Use
  Company Number: US-SAREPTA THERAPEUTICS INC.-SRP2020-000650

PATIENT
  Age: 29 Year
  Sex: Male
  Weight: 72.56 kg

DRUGS (1)
  1. EXONDYS 51 [Suspect]
     Active Substance: ETEPLIRSEN
     Indication: PRODUCT USED FOR UNKNOWN INDICATION
     Dosage: 2580 MG, WEEKLY
     Route: 042

REACTIONS (2)
  - Influenza [Unknown]
  - Respiratory disorder [Unknown]

NARRATIVE: CASE EVENT DATE: 202001
